FAERS Safety Report 5058241-9 (Version None)
Quarter: 2006Q3

REPORT INFORMATION
  Report Type: 
  Country: None (occurrence: None)
  Receive Date: 20060721
  Receipt Date: 20060711
  Transmission Date: 20061208
  Serious: Yes (Hospitalization)
  Sender: FDA-Public Use
  Company Number: PHNR2006AU00902

PATIENT
  Sex: Male

DRUGS (2)
  1. NEORAL [Suspect]
     Indication: TRANSPLANT
  2. NEORAL [Suspect]
     Route: 048
     Dates: start: 20060626

REACTIONS (2)
  - BLOOD CREATININE INCREASED [None]
  - GASTRIC BANDING [None]
